FAERS Safety Report 8847035 (Version 3)
Quarter: 2012Q4

REPORT INFORMATION
  Report Type: 
  Country: AU (occurrence: AU)
  Receive Date: 20121018
  Receipt Date: 20121214
  Transmission Date: 20130627
  Serious: Yes (Hospitalization)
  Sender: FDA-Public Use
  Company Number: AU-009507513-1210AUS006931

PATIENT
  Age: 59 Year
  Sex: Male
  Weight: 66 kg

DRUGS (6)
  1. VICTRELIS 200 MG [Suspect]
     Dosage: 800 mg, q8h
     Route: 048
     Dates: start: 20120726, end: 20120924
  2. PEGATRON [Suspect]
     Dosage: UNK
     Dates: end: 20120926
  3. RIBAVIRIN [Suspect]
     Dosage: UNK
     Route: 048
     Dates: end: 20120926
  4. GLICLAZIDE [Concomitant]
     Indication: TYPE 2 DIABETES MELLITUS
     Dosage: 60 mg, qd
  5. OMEPRAZOLE [Concomitant]
     Dosage: 20 mg, qam
  6. PROPRANOL [Concomitant]
     Dosage: 10 mg, bid

REACTIONS (6)
  - Pneumonia mycoplasmal [Recovered/Resolved]
  - Urinary tract infection [Recovered/Resolved]
  - Gastrointestinal disorder [Recovered/Resolved]
  - Blood albumin decreased [Recovered/Resolved]
  - Diarrhoea [Recovered/Resolved]
  - Hypotension [Recovered/Resolved]
